FAERS Safety Report 11335974 (Version 1)
Quarter: 2015Q3

REPORT INFORMATION
  Report Type: Report from Study
  Country: JP (occurrence: JP)
  Receive Date: 20150804
  Receipt Date: 20150804
  Transmission Date: 20151125
  Serious: Yes (Hospitalization)
  Sender: FDA-Public Use
  Company Number: JP-SA-THYM-1001144

PATIENT
  Age: 74 Year
  Sex: Female
  Weight: 50 kg

DRUGS (20)
  1. DIFLUCAN [Concomitant]
     Active Substance: FLUCONAZOLE
     Indication: PROPHYLAXIS
     Dates: start: 20090527, end: 20091027
  2. THYMOGLOBULINE [Suspect]
     Active Substance: LAPINE T-LYMPHOCYTE IMMUNE GLOBULIN
     Dosage: 187 MG, QD
     Route: 042
     Dates: start: 20090527, end: 20090531
  3. PREDNISOLONE ACETATE. [Concomitant]
     Active Substance: PREDNISOLONE ACETATE
     Indication: APLASTIC ANAEMIA
     Dosage: 10 MG, QD
     Route: 048
     Dates: start: 20090619
  4. DEPAS [Concomitant]
     Active Substance: ETIZOLAM
     Dates: start: 20090527
  5. PREDNISOLONE ACETATE. [Concomitant]
     Active Substance: PREDNISOLONE ACETATE
     Indication: APLASTIC ANAEMIA
     Dosage: 5 MG, QD
     Route: 048
     Dates: start: 20090626
  6. VICCLOX [Concomitant]
     Active Substance: ACYCLOVIR SODIUM
     Indication: PROPHYLAXIS
     Dates: start: 20090527, end: 20091027
  7. FILGRASTIM [Concomitant]
     Active Substance: FILGRASTIM
     Indication: APLASTIC ANAEMIA
     Dosage: 150 MCG, QD
     Route: 042
     Dates: start: 20090528, end: 20090612
  8. CICLOSPORIN [Concomitant]
     Active Substance: CYCLOSPORINE
     Indication: PRODUCT USED FOR UNKNOWN INDICATION
     Dosage: 250 MG, UNK
     Route: 048
     Dates: start: 20090528, end: 20090729
  9. HUMAN RED BLOOD CELLS [Concomitant]
     Active Substance: HUMAN RED BLOOD CELL
     Indication: APLASTIC ANAEMIA
     Dosage: UNK
     Route: 065
     Dates: start: 20080906, end: 20091027
  10. PLATELETS [Concomitant]
     Active Substance: HUMAN PLATELET, ALLOGENIC
     Indication: APLASTIC ANAEMIA
     Dosage: UNK
     Route: 065
     Dates: start: 20080822, end: 20091027
  11. MAGMITT [Concomitant]
     Active Substance: MAGNESIUM OXIDE
     Dates: start: 20090527
  12. SILECE [Concomitant]
     Active Substance: FLUNITRAZEPAM
     Dates: start: 20090527
  13. METHYLPREDNISOLONE SODIUM SUCCINATE. [Concomitant]
     Active Substance: METHYLPREDNISOLONE SODIUM SUCCINATE
     Indication: PRODUCT USED FOR UNKNOWN INDICATION
     Dosage: 100 MG, QD
     Route: 042
     Dates: start: 20090528, end: 20090601
  14. PREDNISOLONE ACETATE. [Concomitant]
     Active Substance: PREDNISOLONE ACETATE
     Indication: APLASTIC ANAEMIA
     Dosage: 50 MG, QD
     Route: 048
     Dates: start: 20090602
  15. PREDNISOLONE ACETATE. [Concomitant]
     Active Substance: PREDNISOLONE ACETATE
     Indication: APLASTIC ANAEMIA
     Dosage: 25 MG, QD
     Route: 048
     Dates: start: 20090609
  16. GASLON [Concomitant]
     Active Substance: IRSOGLADINE MALEATE
     Dates: start: 20090527, end: 20091027
  17. ALOSENN [Concomitant]
     Active Substance: SENNA LEAF
     Dates: start: 20090527
  18. BONALON [Concomitant]
     Active Substance: ALENDRONATE SODIUM
     Dates: start: 20090527, end: 20091027
  19. PREDONINE [Concomitant]
     Active Substance: PREDNISOLONE\PREDNISOLONE ACETATE\PREDNISOLONE SODIUM SUCCINATE
     Indication: PROPHYLAXIS
     Dates: start: 20090527, end: 20090711
  20. OMEPRAL [Concomitant]
     Active Substance: OMEPRAZOLE
     Dates: start: 20090527

REACTIONS (2)
  - Bronchopulmonary aspergillosis [Recovered/Resolved]
  - Hepatic function abnormal [Recovering/Resolving]

NARRATIVE: CASE EVENT DATE: 20090529
